FAERS Safety Report 9092371 (Version 2)
Quarter: 2013Q1

REPORT INFORMATION
  Report Type: Spontaneous
  Country: DE (occurrence: DE)
  Receive Date: 20130201
  Receipt Date: 20130225
  Transmission Date: 20140127
  Serious: Yes (Hospitalization)
  Sender: FDA-Public Use
  Company Number: PHHY2013DE009271

PATIENT
  Sex: Female
  Weight: 112 kg

DRUGS (5)
  1. GILENYA [Suspect]
     Dosage: 0.5 MG, UNK
     Route: 048
     Dates: start: 2011, end: 20130126
  2. GILENYA [Suspect]
     Dosage: 0.5 MG, UNK
     Route: 048
  3. ENALAPRIL [Concomitant]
     Indication: HYPERTENSION
     Dosage: 20 MG, QD
     Route: 048
  4. ISMN [Concomitant]
     Indication: HYPERTENSION
     Dosage: 30 MG, QD
     Route: 048
  5. SALBUTAMOL [Concomitant]
     Indication: ASTHMA
     Dosage: 5 DF, QD

REACTIONS (2)
  - Biliary colic [Recovered/Resolved]
  - Cholecystitis [Recovered/Resolved]
